FAERS Safety Report 8358416 (Version 4)
Quarter: 2012Q4

REPORT INFORMATION
  Report Type: Report from Study
  Country: AT (occurrence: AT)
  Receive Date: 20120127
  Receipt Date: 20120924
  Transmission Date: 20130627
  Serious: Yes (Hospitalization, Other)
  Sender: FDA-Public Use
  Company Number: AT-ABBOTT-12P-009-0895623-00

PATIENT
  Age: 24 Year
  Sex: Female
  Weight: 65 kg

DRUGS (4)
  1. HUMIRA [Suspect]
     Dosage: 160 mg (baseline) / 80 mg (week 2)
     Route: 058
     Dates: start: 20080314, end: 20100829
  2. URBASON [Concomitant]
     Indication: INFLAMMATION
     Dates: start: 20100913, end: 20100928
  3. CIPROXIN [Concomitant]
     Indication: PRODUCT USED FOR UNKNOWN INDICATION
     Dates: start: 20100902, end: 20101010
  4. AZATHIOPRINE [Concomitant]
     Indication: IMMUNOSUPPRESSION
     Dates: start: 20031010

REACTIONS (2)
  - Colonic stenosis [Recovered/Resolved]
  - Subileus [Recovered/Resolved]
